FAERS Safety Report 25050001 (Version 1)
Quarter: 2025Q1

REPORT INFORMATION
  Report Type: Spontaneous
  Country: US (occurrence: None)
  Receive Date: 20250307
  Receipt Date: 20250307
  Transmission Date: 20250408
  Serious: Yes (Hospitalization)
  Sender: FDA-CTU
  Company Number: None

PATIENT
  Age: 62 Year
  Sex: Male
  Weight: 86.5 kg

DRUGS (2)
  1. ABIRATERONE ACETATE [Suspect]
     Active Substance: ABIRATERONE ACETATE
     Dates: end: 20250128
  2. PREDNISONE [Suspect]
     Active Substance: PREDNISONE
     Dates: end: 20250128

REACTIONS (3)
  - Joint dislocation [None]
  - Shoulder fracture [None]
  - Humerus fracture [None]

NARRATIVE: CASE EVENT DATE: 20250128
